FAERS Safety Report 5084484-4 (Version None)
Quarter: 2006Q3

REPORT INFORMATION
  Report Type: 
  Country: None (occurrence: None)
  Receive Date: 20060821
  Receipt Date: 20060628
  Transmission Date: 20061208
  Serious: Yes (Death, Hospitalization)
  Sender: FDA-Public Use
  Company Number: US-GLAXOSMITHKLINE-A0610584A

PATIENT
  Age: 81 Year
  Sex: Male

DRUGS (4)
  1. TUMS REGULAR TABLETS, PEPPERMINT [Suspect]
     Dates: end: 20060625
  2. MILK OF MAGNESIA TAB [Suspect]
  3. METOPROLOL [Concomitant]
  4. CLONIDINE [Concomitant]

REACTIONS (8)
  - ABDOMINAL PAIN [None]
  - AZOTAEMIA [None]
  - BLOOD CALCIUM INCREASED [None]
  - CARDIOPULMONARY FAILURE [None]
  - CONSTIPATION [None]
  - DYSPEPSIA [None]
  - OVERDOSE [None]
  - PNEUMONIA BACTERIAL [None]
